FAERS Safety Report 5280597-2 (Version None)
Quarter: 2007Q1

REPORT INFORMATION
  Report Type: 
  Country: None (occurrence: None)
  Receive Date: 20061215
  Receipt Date: 20060911
  Transmission Date: 20070707
  Serious: Yes (Hospitalization)
  Sender: FDA-Public Use
  Company Number: HQWYE616913SEP06

PATIENT
  Age: 35 Year
  Sex: Male

DRUGS (4)
  1. EFFEXOR XR [Suspect]
     Indication: BIPOLAR II DISORDER
     Dosage: SEE IMAGE
     Route: 048
     Dates: end: 20000301
  2. EFFEXOR XR [Suspect]
     Indication: BIPOLAR II DISORDER
     Dosage: SEE IMAGE
     Route: 048
     Dates: start: 20000301, end: 20050301
  3. EFFEXOR XR [Suspect]
     Indication: BIPOLAR II DISORDER
     Dosage: SEE IMAGE
     Route: 048
     Dates: start: 19990301
  4. ZYPREXA [Concomitant]

REACTIONS (24)
  - ABDOMINAL PAIN [None]
  - ABNORMAL DREAMS [None]
  - AGITATION [None]
  - ANXIETY [None]
  - BLOOD CHOLESTEROL INCREASED [None]
  - BLOOD PRESSURE INCREASED [None]
  - BLOOD TRIGLYCERIDES INCREASED [None]
  - CONDITION AGGRAVATED [None]
  - DIABETES MELLITUS [None]
  - DRUG WITHDRAWAL SYNDROME [None]
  - ERECTILE DYSFUNCTION [None]
  - FATIGUE [None]
  - HYPERHIDROSIS [None]
  - HYPERTHYROIDISM [None]
  - HYPOTHYROIDISM [None]
  - IMPULSIVE BEHAVIOUR [None]
  - INSOMNIA [None]
  - INTESTINAL OBSTRUCTION [None]
  - RESTLESSNESS [None]
  - SUICIDAL IDEATION [None]
  - SUICIDE ATTEMPT [None]
  - THINKING ABNORMAL [None]
  - UMBILICAL HERNIA [None]
  - WEIGHT INCREASED [None]
